FAERS Safety Report 19878672 (Version 1)
Quarter: 2021Q3

REPORT INFORMATION
  Report Type: Spontaneous
  Country: US (occurrence: US)
  Receive Date: 20210924
  Receipt Date: 20210924
  Transmission Date: 20211014
  Serious: No
  Sender: FDA-Public Use
  Company Number: None

PATIENT
  Age: 45 Year
  Sex: Female
  Weight: 78.75 kg

DRUGS (2)
  1. HUMIRA [Suspect]
     Active Substance: ADALIMUMAB
     Indication: PSORIASIS
     Dosage: OTHER FREQUENCY:EVERY 2 WEEKS;?
     Route: 058
     Dates: start: 20210609
  2. KETOCONAZOLE EXTERNAL SHAMPOO 2% [Concomitant]
     Dates: start: 20210607

REACTIONS (5)
  - Oropharyngeal pain [None]
  - Alopecia [None]
  - Upper respiratory tract infection [None]
  - Vulvovaginal mycotic infection [None]
  - Middle ear effusion [None]

NARRATIVE: CASE EVENT DATE: 20210824
